FAERS Safety Report 11646869 (Version 2)
Quarter: 2016Q1

REPORT INFORMATION
  Report Type: Spontaneous
  Country: US (occurrence: US)
  Receive Date: 20151020
  Receipt Date: 20160122
  Transmission Date: 20160525
  Serious: No
  Sender: FDA-Public Use
  Company Number: US-BAUSCH-BL-2015-021904

PATIENT
  Age: 61 Year
  Sex: Male

DRUGS (3)
  1. LOTEMAX [Suspect]
     Active Substance: LOTEPREDNOL ETABONATE
     Indication: PHOTOREFRACTIVE KERATECTOMY
     Dosage: RIGHT EYE
     Route: 061
     Dates: start: 20150819, end: 20151025
  2. LOTEMAX [Suspect]
     Active Substance: LOTEPREDNOL ETABONATE
     Dosage: RIGHT EYE
     Route: 061
     Dates: start: 20150819, end: 20151025
  3. SIMILASON DRY EYE RELIEF [Concomitant]
     Indication: DRY EYE
     Dosage: AS NEEDED
     Route: 061

REACTIONS (4)
  - Application site irritation [Unknown]
  - Application site erythema [Not Recovered/Not Resolved]
  - Lacrimation increased [Unknown]
  - Conjunctivitis [Recovering/Resolving]

NARRATIVE: CASE EVENT DATE: 2015
